FAERS Safety Report 18783251 (Version 2)
Quarter: 2021Q1

REPORT INFORMATION
  Report Type: Spontaneous
  Country: US (occurrence: US)
  Receive Date: 20210125
  Receipt Date: 20210215
  Transmission Date: 20210419
  Serious: Yes (Death, Hospitalization)
  Sender: FDA-Public Use
  Company Number: US-KARYOPHARM-2021KPT000034

PATIENT

DRUGS (2)
  1. VARUBI [ROLAPITANT] [Concomitant]
     Indication: PRODUCT USED FOR UNKNOWN INDICATION
     Dosage: 180 MG
     Route: 048
  2. XPOVIO [Suspect]
     Active Substance: SELINEXOR
     Indication: PLASMA CELL MYELOMA
     Dosage: 60 MG, WEEKLY
     Route: 048
     Dates: start: 20201024, end: 20201224

REACTIONS (6)
  - Death [Fatal]
  - Internal haemorrhage [Unknown]
  - Incoherent [Unknown]
  - Asthenia [Unknown]
  - Cardiac failure [Recovered/Resolved]
  - Localised infection [Unknown]

NARRATIVE: CASE EVENT DATE: 20201224
